FAERS Safety Report 17946654 (Version 1)
Quarter: 2020Q2

REPORT INFORMATION
  Report Type: Report from Study
  Country: None (occurrence: US)
  Receive Date: 20200625
  Receipt Date: 20200625
  Transmission Date: 20200714
  Serious: Yes (Hospitalization)
  Sender: FDA-Public Use
  Company Number: US-ABBVIE-20P-163-3354722-00

PATIENT
  Age: 51 Year
  Sex: Male
  Weight: 66.1 kg

DRUGS (3)
  1. OBINUTUZUMAB. [Concomitant]
     Active Substance: OBINUTUZUMAB
     Indication: CHRONIC LYMPHOCYTIC LEUKAEMIA
     Dosage: 1000MG C1D1, DAYS 8 AND DAYS 15, C1-C6
     Route: 042
     Dates: start: 20190723, end: 20191213
  2. VENETOCLAX. [Suspect]
     Active Substance: VENETOCLAX
     Indication: CHRONIC LYMPHOCYTIC LEUKAEMIA
     Dosage: 20MG DAY1-7,50MG DAY8-14,100MG DAY15-21,200MG DAY22-28 OF CYCLE 3,400MG DAY1-28 CYCLES4-14
     Route: 048
     Dates: start: 20190723, end: 20200226
  3. IBRUTINIB [Suspect]
     Active Substance: IBRUTINIB
     Indication: CHRONIC LYMPHOCYTIC LEUKAEMIA
     Dosage: DAYS 1-28 CYCLES 1-19
     Route: 048
     Dates: start: 20190723, end: 20200226

REACTIONS (4)
  - Pyrexia [Not Recovered/Not Resolved]
  - Aspartate aminotransferase increased [Not Recovered/Not Resolved]
  - Myalgia [Not Recovered/Not Resolved]
  - Alanine aminotransferase increased [Not Recovered/Not Resolved]

NARRATIVE: CASE EVENT DATE: 20200124
